FAERS Safety Report 15180491 (Version 2)
Quarter: 2018Q3

REPORT INFORMATION
  Report Type: Spontaneous
  Country: US (occurrence: US)
  Receive Date: 20180723
  Receipt Date: 20180911
  Transmission Date: 20181010
  Serious: No
  Sender: FDA-Public Use
  Company Number: US-PFIZER INC-2018235397

PATIENT
  Age: 46 Year
  Sex: Female
  Weight: 70 kg

DRUGS (10)
  1. XELJANZ [Suspect]
     Active Substance: TOFACITINIB CITRATE
     Dosage: 5 MG, TWICE DAILY
     Route: 048
     Dates: start: 201802
  2. METFORMIN [Concomitant]
     Active Substance: METFORMIN HYDROCHLORIDE
     Indication: TYPE 2 DIABETES MELLITUS
     Dosage: 500 MG, TWICE DAILY
     Dates: start: 2015
  3. XELJANZ [Suspect]
     Active Substance: TOFACITINIB CITRATE
     Dosage: 5 MG, 2X/DAY
     Dates: start: 201807
  4. XELJANZ [Suspect]
     Active Substance: TOFACITINIB CITRATE
     Indication: RHEUMATOID ARTHRITIS
     Dosage: 5 MG, TWICE DAILY
     Route: 048
     Dates: start: 20180221, end: 2018
  5. ERGOCALCIFEROL. [Concomitant]
     Active Substance: ERGOCALCIFEROL
     Dosage: 50000 IU, WEEKLY
     Route: 048
     Dates: start: 20180714
  6. XELJANZ [Suspect]
     Active Substance: TOFACITINIB CITRATE
     Dosage: 5 MG, 1X/DAY (ONCE A DAY OR EVERY OTHER DAY)
     Route: 048
     Dates: start: 20180411, end: 20180611
  7. ERGOCALCIFEROL. [Concomitant]
     Active Substance: ERGOCALCIFEROL
     Indication: VITAMIN SUPPLEMENTATION
     Dosage: 50000 IU, WEEKLY
     Route: 048
     Dates: start: 201805
  8. NORGESTREL/ETHINYL ESTRADIOL [Concomitant]
     Active Substance: ETHINYL ESTRADIOL\NORGESTREL
     Indication: CONTRACEPTION
     Dosage: 0.03 MG, UNK()0.3MG/0.03MG, 28 TABLETS
     Dates: start: 201807
  9. CALCIUM 600 + D [Concomitant]
     Active Substance: CALCIUM\VITAMIN D
     Indication: BLOOD CALCIUM DECREASED
     Dosage: UNK (THREE TIMES A WEEK)
     Dates: start: 201803
  10. MONTELUKAST [Concomitant]
     Active Substance: MONTELUKAST SODIUM
     Indication: HYPERSENSITIVITY
     Dosage: 10 MG, DAILY
     Route: 048
     Dates: start: 201804

REACTIONS (15)
  - Vertigo [Not Recovered/Not Resolved]
  - Hepatic enzyme increased [Unknown]
  - Intentional product use issue [Unknown]
  - Pyrexia [Unknown]
  - Vomiting [Unknown]
  - Ovarian enlargement [Unknown]
  - Dizziness [Not Recovered/Not Resolved]
  - Pelvic cyst [Unknown]
  - Visual impairment [Unknown]
  - Gait disturbance [Unknown]
  - Cold sweat [Unknown]
  - Drug ineffective [Unknown]
  - Vision blurred [Unknown]
  - Uterine leiomyoma [Unknown]
  - Dyslexia [Unknown]

NARRATIVE: CASE EVENT DATE: 20180411
